FAERS Safety Report 7197278-0 (Version None)
Quarter: 2010Q4

REPORT INFORMATION
  Report Type: 
  Country: None (occurrence: None)
  Receive Date: 20101226
  Receipt Date: 20101213
  Transmission Date: 20110411
  Serious: Yes (Other)
  Sender: FDA-Public Use
  Company Number: US-CELGENEUS-163-21880-10111217

PATIENT
  Sex: Female

DRUGS (4)
  1. REVLIMID [Suspect]
     Indication: MULTIPLE MYELOMA
     Route: 048
     Dates: start: 20090401, end: 20090101
  2. REVLIMID [Suspect]
     Route: 048
     Dates: start: 20091001, end: 20091201
  3. REVLIMID [Suspect]
     Route: 048
     Dates: start: 20091201, end: 20100101
  4. REVLIMID [Suspect]
     Route: 048
     Dates: start: 20100101

REACTIONS (1)
  - RETINAL TEAR [None]
